FAERS Safety Report 25376091 (Version 3)
Quarter: 2025Q2

REPORT INFORMATION
  Report Type: Report from Study
  Country: US (occurrence: US)
  Receive Date: 20250529
  Receipt Date: 20250624
  Transmission Date: 20250716
  Serious: Yes (Hospitalization)
  Sender: MALLINCKRODT
  Company Number: US-MALLINCKRODT-MNK202503096

PATIENT
  Age: 7 Month
  Sex: Male
  Weight: 6 kg

DRUGS (6)
  1. CORTICOTROPIN [Suspect]
     Active Substance: CORTICOTROPIN
     Indication: Infantile spasms
     Route: 030
     Dates: start: 20250506, end: 202505
  2. CORTICOTROPIN [Suspect]
     Active Substance: CORTICOTROPIN
     Dates: start: 202505
  3. VIGABATRIN [Concomitant]
     Active Substance: VIGABATRIN
  4. OXYGEN [Concomitant]
     Active Substance: OXYGEN
  5. TYLENOL [Concomitant]
     Active Substance: ACETAMINOPHEN
  6. SABRIL [Concomitant]
     Active Substance: VIGABATRIN

REACTIONS (2)
  - Seizure [Recovering/Resolving]
  - Constipation [Recovered/Resolved]

NARRATIVE: CASE EVENT DATE: 20250101
